FAERS Safety Report 9820506 (Version 3)
Quarter: 2014Q1

REPORT INFORMATION
  Report Type: Spontaneous
  Country: JP (occurrence: JP)
  Receive Date: 20140116
  Receipt Date: 20140313
  Transmission Date: 20141002
  Serious: Yes (Hospitalization)
  Sender: FDA-Public Use
  Company Number: JP-PFIZER INC-2014011506

PATIENT
  Age: 78 Year
  Sex: Male
  Weight: 52 kg

DRUGS (9)
  1. SUTENT [Suspect]
     Indication: RENAL CELL CARCINOMA
     Dosage: 37.5 MG, 1X/DAY
     Route: 048
     Dates: start: 20121029, end: 20130923
  2. RABEPRAZOLE [Concomitant]
     Indication: HYPERTENSION
     Dosage: 10 MG, 1X/DAY
     Route: 048
     Dates: start: 20110311
  3. AZELNIDIPINE [Concomitant]
     Indication: HYPERTENSION
     Dosage: 16 MG, 1X/DAY
     Route: 048
     Dates: start: 20110311
  4. OLMETEC [Concomitant]
     Indication: HYPERTENSION
     Dosage: 20 MG, 2X/DAY
     Route: 048
     Dates: start: 20110311
  5. ARTIST [Concomitant]
     Indication: HYPERTENSION
     Dosage: 5 MG, 1X/DAY
     Route: 048
     Dates: start: 20110311
  6. THYRADIN S [Concomitant]
     Indication: HYPOTHYROIDISM
     Dosage: 50 UG, 1X/DAY
     Route: 048
     Dates: start: 20110311
  7. FUROSEMIDE [Concomitant]
     Indication: RENAL IMPAIRMENT
     Dosage: 40 MG, 2X/DAY
     Route: 048
     Dates: start: 20130109
  8. KALIMATE [Concomitant]
     Indication: RENAL IMPAIRMENT
     Dosage: 5 G, 1X/DAY
     Route: 048
     Dates: start: 20130109
  9. SODIUM BICARBONATE [Concomitant]
     Indication: RENAL IMPAIRMENT
     Dosage: 2 G, 2X/DAY
     Route: 048
     Dates: start: 20130109

REACTIONS (3)
  - Pleural effusion [Recovering/Resolving]
  - Anaemia [Recovering/Resolving]
  - Hypothyroidism [Unknown]
